FAERS Safety Report 8861824 (Version 1)
Quarter: 2012Q4

REPORT INFORMATION
  Report Type: Spontaneous
  Country: None (occurrence: None)
  Receive Date: 20121024
  Receipt Date: 20121024
  Transmission Date: 20130627
  Serious: Yes (Hospitalization)
  Sender: FDA-Public Use
  Company Number: AUR-APL-2012-03765

PATIENT
  Age: 43 Year
  Sex: Female
  Weight: 140 kg

DRUGS (5)
  1. QUETIAPINE [Suspect]
     Indication: BIPOLAR DISORDER
     Route: 048
     Dates: start: 2006, end: 20120806
  2. DIAZEPAM [Concomitant]
  3. FUROSEMIDE [Concomitant]
  4. PAROXETINE [Concomitant]
  5. ZOLPIDEM [Concomitant]

REACTIONS (2)
  - Congestive cardiomyopathy [None]
  - Cardiac failure [None]
